FAERS Safety Report 6291415-8 (Version None)
Quarter: 2009Q3

REPORT INFORMATION
  Report Type: 
  Country: None (occurrence: None)
  Receive Date: 20090729
  Receipt Date: 20090729
  Transmission Date: 20100115
  Serious: Yes (Disabling)
  Sender: FDA-Public Use
  Company Number: None

PATIENT
  Age: 16 Year
  Sex: Female
  Weight: 75 kg

DRUGS (1)
  1. GEODON [Suspect]
     Dosage: 80 MG BID PO
     Route: 048
     Dates: start: 20090502, end: 20090525

REACTIONS (2)
  - BLOOD PROLACTIN INCREASED [None]
  - PARANOIA [None]
